FAERS Safety Report 20442969 (Version 1)
Quarter: 2022Q1

REPORT INFORMATION
  Report Type: Spontaneous
  Country: US (occurrence: US)
  Receive Date: 20220208
  Receipt Date: 20220208
  Transmission Date: 20220423
  Serious: No
  Sender: FDA-Public Use
  Company Number: US-GSKCCFUS-Case-01287789_AE-75101

PATIENT
  Age: 70 Year
  Sex: Male

DRUGS (2)
  1. SOTROVIMAB [Suspect]
     Active Substance: SOTROVIMAB
     Indication: Product used for unknown indication
     Dosage: 500 MG
     Route: 042
     Dates: start: 20220204
  2. SODIUM CHLORIDE [Concomitant]
     Active Substance: SODIUM CHLORIDE
     Indication: Vehicle solution use
     Dosage: 100 ML

REACTIONS (2)
  - Infusion site extravasation [Unknown]
  - Underdose [Unknown]

NARRATIVE: CASE EVENT DATE: 20220204
